FAERS Safety Report 24280836 (Version 1)
Quarter: 2024Q3

REPORT INFORMATION
  Report Type: Spontaneous
  Country: TH (occurrence: TH)
  Receive Date: 20240904
  Receipt Date: 20240904
  Transmission Date: 20241017
  Serious: Yes (Other)
  Sender: AZURITY PHARMACEUTICALS
  Company Number: TH-AZURITY PHARMACEUTICALS, INC.-AZR202408-000443

PATIENT
  Age: 4 Year
  Sex: Male

DRUGS (12)
  1. METHOTREXATE [Suspect]
     Active Substance: METHOTREXATE
     Indication: Acute lymphocytic leukaemia
     Dosage: 16 MILLIGRAM, UNKNOWN
     Route: 037
  2. METHOTREXATE [Suspect]
     Active Substance: METHOTREXATE
     Indication: Metastases to central nervous system
     Dosage: 800 MILLIGRAM, UNKNOWN
     Route: 042
  3. METHOTREXATE [Suspect]
     Active Substance: METHOTREXATE
     Dosage: 104 MG, UNKNOWN (1.705 GRAM PER METER SQUARE)
     Route: 037
  4. METHOTREXATE [Suspect]
     Active Substance: METHOTREXATE
     Dosage: 7000 MG, UNKNOWN (11.475 GRAM PER METER SQUARE)
     Route: 042
  5. CYTARABINE [Suspect]
     Active Substance: CYTARABINE
     Indication: Acute lymphocytic leukaemia
     Dosage: UNK
     Route: 037
  6. CYTARABINE [Suspect]
     Active Substance: CYTARABINE
     Indication: Metastases to central nervous system
  7. VINCRISTINE [Concomitant]
     Active Substance: VINCRISTINE
     Indication: Acute lymphocytic leukaemia
     Dosage: UNK
     Route: 065
  8. VINCRISTINE [Concomitant]
     Active Substance: VINCRISTINE
     Indication: Metastases to central nervous system
  9. ASPARAGINASE [Concomitant]
     Active Substance: ASPARAGINASE
     Indication: Acute lymphocytic leukaemia
     Dosage: UNK
     Route: 065
  10. ASPARAGINASE [Concomitant]
     Active Substance: ASPARAGINASE
     Indication: Metastases to central nervous system
  11. HYDROCORTISONE [Concomitant]
     Active Substance: HYDROCORTISONE\HYDROCORTISONE ACETATE
     Indication: Acute lymphocytic leukaemia
     Dosage: UNK
     Route: 037
  12. HYDROCORTISONE [Concomitant]
     Active Substance: HYDROCORTISONE\HYDROCORTISONE ACETATE
     Indication: Metastases to central nervous system

REACTIONS (2)
  - Neurotoxicity [Recovered/Resolved]
  - Encephalopathy [Recovered/Resolved]
